FAERS Safety Report 4650997-X (Version None)
Quarter: 2005Q2

REPORT INFORMATION
  Report Type: 
  Country: None (occurrence: None)
  Receive Date: 20050503
  Receipt Date: 20050422
  Transmission Date: 20051028
  Serious: Yes (Hospitalization)
  Sender: FDA-Public Use
  Company Number: DE-BRISTOL-MYERS SQUIBB COMPANY-12942876

PATIENT
  Age: 69 Year
  Sex: Male
  Weight: 76 kg

DRUGS (1)
  1. PRAVASIN [Suspect]
     Indication: HYPERCHOLESTEROLAEMIA
     Dates: start: 20050215, end: 20050228

REACTIONS (1)
  - MUSCLE DISORDER [None]
